FAERS Safety Report 8292212-4 (Version None)
Quarter: 2012Q2

REPORT INFORMATION
  Report Type: 
  Country: None (occurrence: None)
  Receive Date: 20120417
  Receipt Date: 20120409
  Transmission Date: 20120825
  Serious: Yes (Hospitalization, Other)
  Sender: FDA-Public Use
  Company Number: TR-ELI_LILLY_AND_COMPANY-TR201204003509

PATIENT
  Age: 74 Year
  Sex: Female

DRUGS (1)
  1. TERIPARATIDE [Suspect]
     Indication: OSTEOPOROSIS
     Dosage: 20  UG/DAY
     Route: 058
     Dates: start: 20100426

REACTIONS (3)
  - RENAL FAILURE ACUTE [None]
  - HYPERCALCAEMIA [None]
  - PANCYTOPENIA [None]
